FAERS Safety Report 9026695 (Version 2)
Quarter: 2013Q1

REPORT INFORMATION
  Report Type: Spontaneous
  Country: JP (occurrence: JP)
  Receive Date: 20130123
  Receipt Date: 20130131
  Transmission Date: 20140127
  Serious: Yes (Other)
  Sender: FDA-Public Use
  Company Number: PHHY2013JP006052

PATIENT
  Age: 71 Year
  Sex: Female

DRUGS (12)
  1. WARFARIN [Suspect]
     Indication: PROPHYLAXIS
     Dosage: 2-2.5 MG, PER DAY
  2. WARFARIN [Interacting]
     Dosage: 2MG, PER DAY
  3. CICLOSPORIN [Interacting]
     Indication: NEPHROTIC SYNDROME
     Dosage: 150 MG, PER DAY
  4. CICLOSPORIN [Interacting]
     Indication: GLOMERULONEPHRITIS MINIMAL LESION
     Dosage: 125 MG, PER DAY
  5. CICLOSPORIN [Interacting]
     Dosage: 150 MG, PER DAY
  6. FLORID [Interacting]
     Indication: ORAL CANDIDIASIS
     Dosage: UNK
     Dates: start: 20101025
  7. PREDNISOLONE [Concomitant]
     Indication: NEPHROTIC SYNDROME
     Dosage: 40 MG, PER DAY
  8. PREDNISOLONE [Concomitant]
     Indication: GLOMERULONEPHRITIS MINIMAL LESION
  9. FUROSEMIDE [Concomitant]
     Dosage: 60 MG, PER DAY
  10. SPIRONOLACTONE [Concomitant]
     Dosage: 25 MG, PER DAY
  11. LANSOPRAZOLE [Concomitant]
     Dosage: 15 MG, PER DAY
  12. TRIMETHOPRIM SULFAMETHOXAZOLE [Concomitant]
     Dosage: 400 MG, UNK

REACTIONS (3)
  - Immunosuppressant drug level increased [Unknown]
  - Drug interaction [Unknown]
  - International normalised ratio increased [Unknown]
